FAERS Safety Report 13383984 (Version 2)
Quarter: 2017Q2

REPORT INFORMATION
  Report Type: Spontaneous
  Country: DE (occurrence: DE)
  Receive Date: 20170329
  Receipt Date: 20170405
  Transmission Date: 20170830
  Serious: Yes (Other)
  Sender: FDA-Public Use
  Company Number: DE-ELI_LILLY_AND_COMPANY-DE201703011622

PATIENT
  Age: 25 Year
  Sex: Male

DRUGS (11)
  1. FLUOROURACIL. [Concomitant]
     Active Substance: FLUOROURACIL
     Dosage: UNK UNK, UNKNOWN
     Route: 065
     Dates: start: 20150225
  2. FLUOROURACIL. [Concomitant]
     Active Substance: FLUOROURACIL
     Indication: COLON CANCER
     Dosage: UNK UNK, UNKNOWN
     Route: 065
     Dates: start: 201306, end: 20131010
  3. FLUOROURACIL. [Concomitant]
     Active Substance: FLUOROURACIL
     Dosage: UNK UNK, UNKNOWN
     Route: 065
     Dates: start: 201401, end: 201402
  4. FOLINIC ACID [Concomitant]
     Active Substance: LEUCOVORIN
     Dosage: UNK UNK, UNKNOWN
     Route: 065
     Dates: start: 20150225
  5. OXALIPLATIN. [Concomitant]
     Active Substance: OXALIPLATIN
     Dosage: UNK UNK, UNKNOWN
     Route: 065
     Dates: start: 20150225
  6. FOLINIC ACID [Concomitant]
     Active Substance: LEUCOVORIN
     Dosage: UNK UNK, UNKNOWN
     Route: 065
     Dates: start: 201401, end: 201402
  7. IRINOTECAN [Concomitant]
     Active Substance: IRINOTECAN
     Indication: COLON CANCER
     Dosage: UNK UNK, UNKNOWN
     Route: 065
     Dates: start: 201306, end: 20131010
  8. FOLINIC ACID [Concomitant]
     Active Substance: LEUCOVORIN
     Indication: COLON CANCER
     Dosage: UNK UNK, UNKNOWN
     Route: 065
     Dates: start: 201306, end: 20131010
  9. OXALIPLATIN. [Concomitant]
     Active Substance: OXALIPLATIN
     Dosage: UNK UNK, UNKNOWN
     Route: 065
     Dates: start: 201401, end: 201402
  10. ERBITUX [Suspect]
     Active Substance: CETUXIMAB
     Indication: COLON CANCER
     Dosage: UNK UNK, UNKNOWN
     Route: 065
     Dates: start: 201306, end: 20131010
  11. OXALIPLATIN. [Concomitant]
     Active Substance: OXALIPLATIN
     Indication: COLON CANCER
     Dosage: UNK UNK, UNKNOWN
     Route: 065
     Dates: start: 201306, end: 20131010

REACTIONS (5)
  - Abscess intestinal [Unknown]
  - Off label use [Unknown]
  - Appendicitis [Unknown]
  - Skin reaction [Unknown]
  - Lymph nodes scan abnormal [Unknown]

NARRATIVE: CASE EVENT DATE: 2013
